FAERS Safety Report 12346092 (Version 1)
Quarter: 2016Q2

REPORT INFORMATION
  Report Type: Spontaneous
  Country: US (occurrence: None)
  Receive Date: 20160506
  Receipt Date: 20160506
  Transmission Date: 20160815
  Serious: No
  Sender: FDA-Public Use
  Company Number: None

PATIENT
  Age: 59 Year
  Sex: Female
  Weight: 83.92 kg

DRUGS (1)
  1. LIDOCAINE PATCH 5%, 5 % TEIKOKU SEIYAKU CO./QUALITEST [Suspect]
     Active Substance: LIDOCAINE
     Indication: MUSCULOSKELETAL PAIN
     Dosage: 1 PATCH EVERY 12 HOURS APPLIED AS MEDICATED PATCH TO SKIN
     Route: 061

REACTIONS (2)
  - Application site swelling [None]
  - Application site vesicles [None]

NARRATIVE: CASE EVENT DATE: 20160504
